FAERS Safety Report 19410779 (Version 1)
Quarter: 2021Q2

REPORT INFORMATION
  Report Type: Spontaneous
  Country: CA (occurrence: CA)
  Receive Date: 20210614
  Receipt Date: 20210614
  Transmission Date: 20210717
  Serious: Yes (Other)
  Sender: FDA-Public Use
  Company Number: CA-JNJFOC-20210616134

PATIENT
  Age: 36 Year
  Sex: Female
  Weight: 73 kg

DRUGS (1)
  1. INFLIXIMAB, RECOMBINANT [Suspect]
     Active Substance: INFLIXIMAB
     Indication: CROHN^S DISEASE
     Route: 042

REACTIONS (10)
  - Oropharyngeal pain [Unknown]
  - Productive cough [Unknown]
  - Off label use [Unknown]
  - Nasopharyngitis [Unknown]
  - Serum ferritin decreased [Unknown]
  - Pharyngeal inflammation [Unknown]
  - Condition aggravated [Unknown]
  - Intentional product use issue [Unknown]
  - Pharyngeal erythema [Unknown]
  - Inappropriate schedule of product administration [Unknown]
